FAERS Safety Report 23081622 (Version 1)
Quarter: 2023Q4

REPORT INFORMATION
  Report Type: Spontaneous
  Country: JP (occurrence: JP)
  Receive Date: 20231019
  Receipt Date: 20231019
  Transmission Date: 20240109
  Serious: Yes (Death, Other)
  Sender: FDA-Public Use
  Company Number: JP-aspen-SDZ2023JP005057AA

PATIENT
  Age: 4 Hour
  Sex: Male
  Weight: 1.225 kg

DRUGS (1)
  1. AMOXICILLIN TRIHYDRATE [Suspect]
     Active Substance: AMOXICILLIN
     Indication: Infection prophylaxis
     Dosage: UNK
     Route: 064

REACTIONS (2)
  - Bradycardia foetal [Fatal]
  - Sepsis neonatal [Fatal]
